FAERS Safety Report 4545929-9 (Version None)
Quarter: 2005Q1

REPORT INFORMATION
  Report Type: 
  Country: None (occurrence: None)
  Receive Date: 20050103
  Receipt Date: 20041222
  Transmission Date: 20050727
  Serious: Yes (Other)
  Sender: FDA-Public Use
  Company Number: 2004117990

PATIENT
  Sex: Male
  Weight: 77.1115 kg

DRUGS (8)
  1. CELEBREX [Suspect]
     Indication: PROSTATE CANCER
     Dosage: 800 MG (400 MG, 2 IN 1 D), ORAL
     Route: 048
  2. ASPIRIN [Concomitant]
  3. FINASTERIDE [Concomitant]
  4. EZETIMIBE (EZETIMIBE) [Concomitant]
  5. ALL OTHER THERAPEUTIC PRODUCTS (ALL OTHER THERAPEUTIC PRODUCTS) [Concomitant]
  6. IRBESARTAN [Concomitant]
  7. METOPROLOL TARTRATE [Concomitant]
  8. TOCOPHEROL CONCENTRATE CAP [Concomitant]

REACTIONS (5)
  - CONDUCTION DISORDER [None]
  - CORONARY ARTERY OCCLUSION [None]
  - MEDICATION ERROR [None]
  - PROSTATIC SPECIFIC ANTIGEN INCREASED [None]
  - STOMACH DISCOMFORT [None]
